FAERS Safety Report 9520152 (Version 1)
Quarter: 2013Q1

REPORT INFORMATION
  Report Type: Spontaneous
  Country: US (occurrence: None)
  Receive Date: 20130305
  Receipt Date: 20130305
  Transmission Date: 20140127
  Serious: Yes (Hospitalization)
  Sender: FDA-Public Use
  Company Number: 163-21880-12010871

PATIENT
  Age: 56 Year
  Sex: Female
  Weight: 64 kg

DRUGS (3)
  1. REVLIMID (LENALIDOMIDE) (15 MILLIGRAM, CAPSULES) [Suspect]
     Indication: PLASMA CELL MYELOMA
     Dosage: 1 IN 1 D
     Route: 048
     Dates: start: 20100108, end: 20100922
  2. VELCADE [Concomitant]
  3. NEURONTIN (GABAPENTIN) [Concomitant]

REACTIONS (4)
  - Pneumonia [None]
  - Liver function test abnormal [None]
  - Anaemia [None]
  - Nasopharyngitis [None]
